FAERS Safety Report 9773230 (Version 2)
Quarter: 2014Q1

REPORT INFORMATION
  Report Type: Report from Study
  Country: US (occurrence: US)
  Receive Date: 20131219
  Receipt Date: 20140210
  Transmission Date: 20141002
  Serious: Yes (Hospitalization)
  Sender: FDA-Public Use
  Company Number: US-NAPPMUNDI-USA-2013-0109504

PATIENT
  Age: 51 Year
  Sex: Female
  Weight: 106.12 kg

DRUGS (2)
  1. OXY CR TAB [Suspect]
     Indication: PAIN
     Dosage: 60 MG, Q12H
     Route: 048
     Dates: start: 20131108
  2. OXY CR TAB [Suspect]
     Dosage: UNK
     Route: 048
     Dates: start: 20111206

REACTIONS (1)
  - Gastrectomy [Recovered/Resolved]
